FAERS Safety Report 8836995 (Version 1)
Quarter: 2012Q4

REPORT INFORMATION
  Report Type: 
  Country: US (occurrence: US)
  Receive Date: 20121011
  Receipt Date: 20121011
  Transmission Date: 20130627
  Serious: No
  Sender: FDA-Public Use
  Company Number: US-009507513-1210USA002217

PATIENT
  Sex: Male

DRUGS (7)
  1. JANUMET [Suspect]
     Indication: DIABETES MELLITUS
     Dosage: 50mg/1000mg twice daily
     Route: 048
     Dates: start: 201110
  2. NIFEDIPINE [Concomitant]
  3. LIPITOR [Concomitant]
  4. LISINOPRIL [Concomitant]
  5. ECOTRIN [Concomitant]
  6. METOPROLOL [Concomitant]
  7. OMEPRAZOLE [Concomitant]

REACTIONS (2)
  - Skin lesion [Not Recovered/Not Resolved]
  - Pruritus generalised [Not Recovered/Not Resolved]
